FAERS Safety Report 9295909 (Version 1)
Quarter: 2013Q3

REPORT INFORMATION
  Report Type: Spontaneous
  Country: US (occurrence: None)
  Receive Date: 20130516
  Receipt Date: 20130516
  Transmission Date: 20140515
  Serious: Yes (Hospitalization)
  Sender: FDA-Public Use
  Company Number: None

PATIENT
  Age: 69 Year
  Sex: Female
  Weight: 53.62 kg

DRUGS (12)
  1. ERLOTINIB [Suspect]
     Indication: NON-SMALL CELL LUNG CANCER
     Dates: start: 20120328
  2. CALCIUM CARBONATE [Concomitant]
  3. LIOTHYRONINE SODIUM (CYTOMEL) [Concomitant]
  4. TRIAMTERENE [Concomitant]
  5. HYDROCHLOROTHIAZID [Concomitant]
  6. RALOXIFENE (EVISTA) [Concomitant]
  7. BUTALBITAL+ASA+CAFFEINE [Concomitant]
  8. OMEGA-3-FATTY ACIDS (FISH OIL CAPSULE) [Concomitant]
  9. PREGABALIN (LYRICA) [Concomitant]
  10. OXYCODONE [Concomitant]
  11. ESTRADIOL VAGINAL TABLETS (VAGIFEM) [Concomitant]
  12. CHOLECALCIFEROL (VITAMIN D3) [Concomitant]

REACTIONS (3)
  - Back pain [None]
  - Drug ineffective [None]
  - Metastases to bone [None]
